FAERS Safety Report 10646925 (Version 2)
Quarter: 2015Q1

REPORT INFORMATION
  Report Type: Spontaneous
  Country: RU (occurrence: RU)
  Receive Date: 20141211
  Receipt Date: 20150213
  Transmission Date: 20150720
  Serious: Yes (Hospitalization)
  Sender: FDA-Public Use
  Company Number: RU-ABBVIE-14P-251-1317898-00

PATIENT
  Sex: Male

DRUGS (14)
  1. VITAMIN B6 [Concomitant]
     Active Substance: PYRIDOXINE HYDROCHLORIDE
     Indication: HIV INFECTION
     Route: 048
  2. AVELOX [Concomitant]
     Active Substance: MOXIFLOXACIN HYDROCHLORIDE
     Indication: HIV INFECTION
     Route: 042
  3. SPAZMALGON [Concomitant]
     Indication: HIV INFECTION
     Route: 050
  4. KALETRA [Suspect]
     Active Substance: LOPINAVIR\RITONAVIR
     Indication: HIV INFECTION
     Route: 065
     Dates: start: 201310
  5. ETHAMBUTOL [Concomitant]
     Active Substance: ETHAMBUTOL HYDROCHLORIDE
     Indication: HIV INFECTION
     Dosage: 4 TABLETS
  6. CARSIL [Concomitant]
     Indication: HIV INFECTION
     Dosage: 1 TABLE  - 3 TIMES
  7. ISONIAZID. [Concomitant]
     Active Substance: ISONIAZID
     Indication: HIV INFECTION
     Dosage: 12 MG FOR FIVE DAYS
     Route: 048
  8. ASPARKAM [Concomitant]
     Indication: HIV INFECTION
     Dosage: 1 TABLET - 3 TIMES
  9. DEKSAZMETHAZONE [Concomitant]
     Dosage: 12 MG FOR 5 DAYS
     Route: 042
     Dates: start: 20140507
  10. DEKSAZMETHAZONE [Concomitant]
     Indication: HIV INFECTION
     Route: 042
  11. PYRAZINAMIDE. [Concomitant]
     Active Substance: PYRAZINAMIDE
     Indication: HIV INFECTION
     Dosage: 3 TABLETS IN THE MORNING
  12. COMBIVIR [Suspect]
     Active Substance: LAMIVUDINE\ZIDOVUDINE
     Indication: HIV INFECTION
     Route: 065
     Dates: start: 201310
  13. FUZEON [Suspect]
     Active Substance: ENFUVIRTIDE
     Indication: HIV INFECTION
     Route: 050
     Dates: start: 201310
  14. FLUCONAZOLE. [Concomitant]
     Active Substance: FLUCONAZOLE
     Indication: HIV INFECTION
     Route: 042

REACTIONS (5)
  - Back pain [Unknown]
  - Back pain [Recovered/Resolved]
  - Meningitis tuberculous [Recovering/Resolving]
  - Pulmonary tuberculosis [Recovering/Resolving]
  - Headache [Recovering/Resolving]

NARRATIVE: CASE EVENT DATE: 201312
